FAERS Safety Report 7593071-5 (Version None)
Quarter: 2011Q3

REPORT INFORMATION
  Report Type: 
  Country: None (occurrence: None)
  Receive Date: 20110706
  Receipt Date: 20110627
  Transmission Date: 20111222
  Serious: Yes (Other)
  Sender: FDA-Public Use
  Company Number: CA-ROCHE-786422

PATIENT
  Sex: Female

DRUGS (4)
  1. BEVACIZUMAB [Suspect]
     Indication: GLIOBLASTOMA
     Route: 042
     Dates: start: 20110510, end: 20110620
  2. LAMOTRIGINE [Concomitant]
  3. DEXAMETHASONE [Concomitant]
  4. RANITIDINE [Concomitant]

REACTIONS (3)
  - NEOPLASM MALIGNANT [None]
  - FATIGUE [None]
  - ASTHENIA [None]
